FAERS Safety Report 10369832 (Version 5)
Quarter: 2015Q2

REPORT INFORMATION
  Report Type: Spontaneous
  Country: JP (occurrence: JP)
  Receive Date: 20140808
  Receipt Date: 20150610
  Transmission Date: 20150821
  Serious: Yes (Other)
  Sender: FDA-Public Use
  Company Number: JP-AMGEN-JPNSP2014059670

PATIENT
  Age: 67 Year
  Sex: Male
  Weight: 73 kg

DRUGS (17)
  1. CPT-11 [Concomitant]
     Active Substance: IRINOTECAN
     Dosage: UNK
     Route: 065
     Dates: start: 20130412, end: 20130517
  2. LOXONIN [Concomitant]
     Active Substance: LOXOPROFEN SODIUM
     Indication: OSTEITIS DEFORMANS
     Dosage: 3 DF, TID
     Route: 048
     Dates: start: 20120614
  3. TS-1 [Concomitant]
     Active Substance: GIMERACIL\OTERACIL\TEGAFUR
     Dosage: UNK
     Route: 065
     Dates: start: 20130104, end: 20130201
  4. CARBOPLATIN. [Concomitant]
     Active Substance: CARBOPLATIN
     Dosage: UNK
     Route: 065
     Dates: start: 20130614, end: 20140110
  5. NEDAPLATIN [Concomitant]
     Active Substance: NEDAPLATIN
     Dosage: UNK
     Route: 065
     Dates: start: 20140212, end: 20140312
  6. RANMARK [Suspect]
     Active Substance: DENOSUMAB
     Indication: BONE LESION
     Dosage: 120 MG, Q4WK
     Route: 058
     Dates: start: 20120726, end: 20140704
  7. MUCODYNE [Concomitant]
     Active Substance: CARBOCYSTEINE
     Indication: LUNG NEOPLASM MALIGNANT
     Dosage: 3 DF, TID
     Route: 048
     Dates: start: 20121122
  8. CODEINE PHOSPHATE [Concomitant]
     Active Substance: CODEINE PHOSPHATE
     Indication: LUNG NEOPLASM MALIGNANT
     Dosage: 3 DF, TID
     Route: 048
     Dates: start: 20140214
  9. DENOTAS [Concomitant]
     Active Substance: CALCIUM CARBONATE\CHOLECALCIFEROL\MAGNESIUM CARBONATE
     Indication: OSTEITIS DEFORMANS
     Dosage: 2 DF, QD
     Route: 048
     Dates: start: 20130712
  10. DOCETAXEL. [Concomitant]
     Active Substance: DOCETAXEL
     Indication: LUNG NEOPLASM MALIGNANT
     Dosage: 100 MG, QD
     Route: 050
     Dates: start: 20120620, end: 20140801
  11. AMRUBICIN HYDROCHLORIDE [Concomitant]
     Active Substance: AMRUBICIN HYDROCHLORIDE
     Dosage: UNK
     Route: 065
     Dates: start: 20140212, end: 20140312
  12. MUCOSTA [Concomitant]
     Active Substance: REBAMIPIDE
     Indication: OSTEITIS DEFORMANS
     Dosage: 3 DF, TID
     Route: 048
     Dates: start: 20120614
  13. TAXOTERE [Concomitant]
     Active Substance: DOCETAXEL
     Indication: LUNG NEOPLASM MALIGNANT
     Dosage: 100 MG, QD
     Route: 041
     Dates: start: 20140411, end: 20140801
  14. RANMARK [Suspect]
     Active Substance: DENOSUMAB
     Indication: METASTASES TO BONE
  15. MIYA-BM [Concomitant]
     Active Substance: CLOSTRIDIUM BUTYRICUM SPORES STRAIN M-55
     Indication: DIARRHOEA
     Dosage: 3 DF, TID
     Route: 048
     Dates: start: 20140520
  16. GEMCITABINE [Concomitant]
     Active Substance: GEMCITABINE\GEMCITABINE HYDROCHLORIDE
     Dosage: UNK
     Route: 065
     Dates: start: 20130215, end: 20130315
  17. PACLITAXEL. [Concomitant]
     Active Substance: PACLITAXEL
     Dosage: UNK
     Route: 065
     Dates: start: 20130614, end: 20140110

REACTIONS (1)
  - Osteonecrosis of jaw [Not Recovered/Not Resolved]

NARRATIVE: CASE EVENT DATE: 20140730
